FAERS Safety Report 5658354-4 (Version None)
Quarter: 2008Q1

REPORT INFORMATION
  Report Type: 
  Country: None (occurrence: None)
  Receive Date: 20080310
  Receipt Date: 20070206
  Transmission Date: 20080703
  Serious: No
  Sender: FDA-Public Use
  Company Number: US-BAYER-200710428BCC

PATIENT
  Age: 80 Year
  Sex: Female
  Weight: 67 kg

DRUGS (5)
  1. ALEVE [Suspect]
     Indication: NECK PAIN
     Dosage: TOTAL DAILY DOSE: 220 MG  UNIT DOSE: 220 MG
     Route: 048
     Dates: start: 20070205
  2. ATENOLOL [Concomitant]
  3. ASPIRIN [Concomitant]
  4. CALCIUM [Concomitant]
  5. THYROID TAB [Concomitant]

REACTIONS (2)
  - NAUSEA [None]
  - NECK PAIN [None]
